FAERS Safety Report 7174437-4 (Version None)
Quarter: 2010Q4

REPORT INFORMATION
  Report Type: 
  Country: None (occurrence: None)
  Receive Date: 20101219
  Receipt Date: 20100329
  Transmission Date: 20110411
  Serious: No
  Sender: FDA-Public Use
  Company Number: US-AMGEN-KDL402573

PATIENT

DRUGS (10)
  1. ENBREL [Suspect]
     Indication: PRODUCT USED FOR UNKNOWN INDICATION
     Dosage: 50 MG, 2 TIMES/WK
     Route: 058
  2. CYCLOSPORINE OPHTHALMIC EMULSION [Concomitant]
     Dosage: .05 %, UNK
  3. PREDNISONE [Concomitant]
     Dosage: 2.5 MG, UNK
     Route: 048
  4. LEFLUNOMIDE [Concomitant]
     Dosage: 10 MG, UNK
  5. LISINOPRIL [Concomitant]
     Dosage: 2.5 MG, UNK
     Route: 048
  6. ASPIRIN [Concomitant]
     Dosage: 81 MG, UNK
     Route: 048
  7. METOPROLOL [Concomitant]
     Dosage: 25 MG, UNK
     Route: 048
  8. CALCIUM [Concomitant]
     Dosage: 500 MG, UNK
     Route: 048
  9. LOVAZA [Concomitant]
     Dosage: 340 MG, UNK
     Route: 048
  10. UNSPECIFIED MEDICATION [Concomitant]

REACTIONS (3)
  - DIZZINESS [None]
  - HYPOAESTHESIA [None]
  - PARAESTHESIA [None]
